FAERS Safety Report 10552303 (Version 1)
Quarter: 2014Q4

REPORT INFORMATION
  Report Type: Spontaneous
  Country: ES (occurrence: ES)
  Receive Date: 20141029
  Receipt Date: 20141029
  Transmission Date: 20150529
  Serious: Yes (Hospitalization)
  Sender: FDA-Public Use
  Company Number: ES-BANPHARM-20143165

PATIENT
  Age: 36 Year
  Sex: Male

DRUGS (2)
  1. LIDOCAINE HYDROCHLORIDE UNKNOWN PRODUCT [Suspect]
     Active Substance: LIDOCAINE HYDROCHLORIDE
     Indication: LOCAL ANAESTHESIA
     Dosage: 270 G, ONCE
     Route: 061
  2. PRILOCAIN 2.5% [Suspect]
     Active Substance: PRILOCAINE
     Indication: LOCAL ANAESTHESIA
     Route: 061

REACTIONS (4)
  - Methaemoglobinaemia [Recovered/Resolved]
  - Oxygen saturation decreased [None]
  - Alkalosis [None]
  - Cyanosis [None]
